FAERS Safety Report 18405536 (Version 3)
Quarter: 2021Q1

REPORT INFORMATION
  Report Type: Spontaneous
  Country: US (occurrence: US)
  Receive Date: 20201020
  Receipt Date: 20210104
  Transmission Date: 20210419
  Serious: No
  Sender: FDA-Public Use
  Company Number: US-BIOVITRUM-2020US5188

PATIENT
  Age: 7 Year
  Sex: Male

DRUGS (2)
  1. ANAKINRA [Suspect]
     Active Substance: ANAKINRA
     Indication: STATUS EPILEPTICUS
  2. ANAKINRA [Suspect]
     Active Substance: ANAKINRA
     Indication: ENCEPHALOPATHY
     Route: 058

REACTIONS (1)
  - Off label use [Unknown]
